FAERS Safety Report 18981595 (Version 1)
Quarter: 2021Q1

REPORT INFORMATION
  Report Type: Spontaneous
  Country: CH (occurrence: CH)
  Receive Date: 20210308
  Receipt Date: 20210308
  Transmission Date: 20210420
  Serious: Yes (Other)
  Sender: FDA-Public Use
  Company Number: CH-SA-2021SA068144

PATIENT
  Sex: Female

DRUGS (8)
  1. EMTRICITABINE/TENOFOVIR DISOPROXIL FUMARATE [Suspect]
     Active Substance: EMTRICITABINE\TENOFOVIR DISOPROXIL FUMARATE
     Dosage: 1 DF, QD
     Route: 064
     Dates: start: 20200525
  2. APROVEL [Suspect]
     Active Substance: IRBESARTAN
     Dosage: 300 MG, QD
     Route: 064
     Dates: end: 2020
  3. ISENTRESS [Suspect]
     Active Substance: RALTEGRAVIR POTASSIUM
     Dosage: 400 MG, BID
     Route: 064
     Dates: start: 20200525
  4. HALDOL DECANOATE [Suspect]
     Active Substance: HALOPERIDOL DECANOATE
     Dosage: 12 MG, QD
     Route: 064
  5. BIPERIDEN [Suspect]
     Active Substance: BIPERIDEN
     Dosage: 4 MG, QD
     Route: 064
     Dates: start: 2020
  6. AMLODIPINE [Suspect]
     Active Substance: AMLODIPINE BESYLATE
     Indication: HYPERTENSION
     Dosage: 5 MG, QD
     Route: 064
  7. ESCITALOPRAM OXALATE. [Suspect]
     Active Substance: ESCITALOPRAM OXALATE
     Dosage: 20 MG, QD
     Route: 064
  8. LORAZEPAM. [Suspect]
     Active Substance: LORAZEPAM
     Dosage: UNK UNK, PRN
     Route: 064
     Dates: start: 2020

REACTIONS (5)
  - Foetal growth restriction [Recovered/Resolved]
  - Microcephaly [Unknown]
  - Premature baby [Recovered/Resolved]
  - Cardiac murmur [Unknown]
  - Foetal exposure during pregnancy [Unknown]

NARRATIVE: CASE EVENT DATE: 20200926
